FAERS Safety Report 16481029 (Version 2)
Quarter: 2019Q4

REPORT INFORMATION
  Report Type: Report from Study
  Country: US (occurrence: US)
  Receive Date: 20190626
  Receipt Date: 20191119
  Transmission Date: 20200122
  Serious: Yes (Other)
  Sender: FDA-Public Use
  Company Number: US-SHIRE-US201919789

PATIENT
  Sex: Female

DRUGS (2)
  1. GATTEX [Suspect]
     Active Substance: TEDUGLUTIDE\WATER
     Indication: SHORT-BOWEL SYNDROME
     Dosage: .3000 UNK
     Route: 065
     Dates: start: 20151106
  2. GATTEX [Suspect]
     Active Substance: TEDUGLUTIDE\WATER
     Dosage: 3.7 MILLIGRAM, QOD
     Route: 058
     Dates: start: 20181227

REACTIONS (2)
  - Inappropriate schedule of product administration [Recovered/Resolved]
  - Overgrowth bacterial [Recovered/Resolved]
